FAERS Safety Report 5591264-X (Version None)
Quarter: 2008Q1

REPORT INFORMATION
  Report Type: 
  Country: None (occurrence: None)
  Receive Date: 20080111
  Receipt Date: 20080103
  Transmission Date: 20080703
  Serious: Yes (Hospitalization, Other)
  Sender: FDA-Public Use
  Company Number: 2007-04246

PATIENT
  Age: 61 Year
  Sex: Male
  Weight: 75.4 kg

DRUGS (2)
  1. VELCADE [Suspect]
     Indication: LARYNGEAL CANCER
     Dosage: 1.30 MG/M2, IV BOLUS
     Route: 040
     Dates: start: 20060213, end: 20060313
  2. IRINOTECAN HCL [Suspect]
     Dosage: 125.00 MG/M2, INTRAVENOUS
     Route: 042
     Dates: start: 20060213, end: 20060313

REACTIONS (12)
  - ANOREXIA [None]
  - DEHYDRATION [None]
  - DIARRHOEA [None]
  - HAEMOGLOBIN DECREASED [None]
  - HYPOALBUMINAEMIA [None]
  - HYPOCALCAEMIA [None]
  - HYPOKALAEMIA [None]
  - HYPOPHOSPHATAEMIA [None]
  - ORAL INTAKE REDUCED [None]
  - PYREXIA [None]
  - WEIGHT DECREASED [None]
  - WHITE BLOOD CELL COUNT DECREASED [None]
